FAERS Safety Report 5947759-X (Version None)
Quarter: 2008Q4

REPORT INFORMATION
  Report Type: 
  Country: None (occurrence: None)
  Receive Date: 20081111
  Receipt Date: 20081103
  Transmission Date: 20090506
  Serious: Yes (Hospitalization)
  Sender: FDA-Public Use
  Company Number: US-JNJFOC-20081101700

PATIENT
  Sex: Male
  Weight: 83.01 kg

DRUGS (3)
  1. DURAGESIC-100 [Suspect]
     Indication: GUILLAIN-BARRE SYNDROME
     Route: 062
  2. DIOVAN [Concomitant]
     Indication: BLOOD PRESSURE
     Route: 048
  3. OTHER MEDICATIONS [Concomitant]
     Indication: PRE-EXISTING DISEASE
     Route: 065

REACTIONS (1)
  - HYPERTENSION [None]
